FAERS Safety Report 6693742-9 (Version None)
Quarter: 2010Q2

REPORT INFORMATION
  Report Type: 
  Country: None (occurrence: None)
  Receive Date: 20100423
  Receipt Date: 20090512
  Transmission Date: 20101027
  Serious: No
  Sender: FDA-Public Use
  Company Number: A0783770A

PATIENT
  Age: 32 Year
  Sex: Female

DRUGS (4)
  1. DEXEDRINE [Suspect]
     Indication: NARCOLEPSY
     Dosage: 30MG PER DAY
     Route: 048
     Dates: start: 19940101
  2. DEXEDRINE [Suspect]
     Dosage: 30MG PER DAY
     Route: 048
  3. PRILOSEC [Concomitant]
  4. BIRTH CONTROL PILLS [Concomitant]

REACTIONS (3)
  - DRUG INEFFECTIVE [None]
  - FATIGUE [None]
  - INSOMNIA [None]
